FAERS Safety Report 11059493 (Version 5)
Quarter: 2015Q2

REPORT INFORMATION
  Report Type: Spontaneous
  Country: US (occurrence: US)
  Receive Date: 20150423
  Receipt Date: 20150513
  Transmission Date: 20150821
  Serious: Yes (Death, Hospitalization, Other)
  Sender: FDA-Public Use
  Company Number: US-009507513-1504USA019968

PATIENT
  Age: 66 Year
  Sex: Male

DRUGS (4)
  1. SYNTHROID [Concomitant]
     Active Substance: LEVOTHYROXINE SODIUM
     Dosage: UNK
  2. ANTINEOPLASTIC (UNSPECIFIED) [Concomitant]
     Active Substance: UNSPECIFIED INGREDIENT
     Indication: CHEMOTHERAPY
     Dosage: UNK
  3. NOXAFIL [Suspect]
     Active Substance: POSACONAZOLE
     Indication: ANTIFUNGAL PROPHYLAXIS
     Dosage: THREE 100 MG TABLETS DAILY
     Route: 048
     Dates: start: 20140523, end: 20150409
  4. NOXAFIL [Suspect]
     Active Substance: POSACONAZOLE
     Indication: ACUTE MYELOID LEUKAEMIA

REACTIONS (16)
  - Acute myeloid leukaemia [Fatal]
  - Gastric haemorrhage [Unknown]
  - Anal haemorrhage [Unknown]
  - Back pain [Unknown]
  - Renal haemorrhage [Unknown]
  - Constipation [Unknown]
  - Lung disorder [Unknown]
  - Liver function test abnormal [Unknown]
  - Cytopenia [Unknown]
  - Haemorrhage [Unknown]
  - Peripheral swelling [Unknown]
  - Pneumonia [Unknown]
  - Cardiac failure [Unknown]
  - Palmar-plantar erythrodysaesthesia syndrome [Unknown]
  - Diarrhoea [Unknown]
  - Increased tendency to bruise [Unknown]

NARRATIVE: CASE EVENT DATE: 2014
